FAERS Safety Report 8115408-0 (Version None)
Quarter: 2012Q1

REPORT INFORMATION
  Report Type: 
  Country: None (occurrence: None)
  Receive Date: 20120201
  Receipt Date: 20120121
  Transmission Date: 20120608
  Serious: Yes (Hospitalization, Other)
  Sender: FDA-Public Use
  Company Number: AXC-2012-000019

PATIENT
  Age: 31 Year
  Sex: Male

DRUGS (1)
  1. MESALAMINE [Suspect]
     Indication: COLITIS ULCERATIVE
     Dosage: RECTAL
     Route: 054

REACTIONS (10)
  - HAEMOGLOBIN DECREASED [None]
  - THROMBOTIC THROMBOCYTOPENIC PURPURA [None]
  - BLOOD LACTATE DEHYDROGENASE INCREASED [None]
  - HAPTOGLOBIN DECREASED [None]
  - BLOOD CREATININE INCREASED [None]
  - PYREXIA [None]
  - RETICULOCYTE COUNT INCREASED [None]
  - PANCREATITIS ACUTE [None]
  - RED BLOOD CELL SCHISTOCYTES PRESENT [None]
  - ILEUS PARALYTIC [None]
